FAERS Safety Report 25207378 (Version 1)
Quarter: 2025Q2

REPORT INFORMATION
  Report Type: Report from Study
  Country: US (occurrence: US)
  Receive Date: 20250417
  Receipt Date: 20250417
  Transmission Date: 20250716
  Serious: Yes (Hospitalization)
  Sender: ABBVIE
  Company Number: US-ABBVIE-6197307

PATIENT
  Age: 72 Year
  Sex: Male
  Weight: 72.574 kg

DRUGS (1)
  1. HUMIRA [Suspect]
     Active Substance: ADALIMUMAB
     Indication: Crohn^s disease
     Dosage: CITRATE FREE, FORM STRENGTH: 40 MILLIGRAM
     Route: 058
     Dates: start: 2020

REACTIONS (4)
  - Prostate cancer [Recovering/Resolving]
  - Urinary cystectomy [Recovering/Resolving]
  - Crohn^s disease [Recovering/Resolving]
  - Rectourethral fistula [Recovering/Resolving]

NARRATIVE: CASE EVENT DATE: 20210101
